FAERS Safety Report 10378645 (Version 2)
Quarter: 2014Q3

REPORT INFORMATION
  Report Type: Spontaneous
  Country: US (occurrence: US)
  Receive Date: 20140812
  Receipt Date: 20140926
  Transmission Date: 20150326
  Serious: Yes (Hospitalization)
  Sender: FDA-Public Use
  Company Number: US-BAYER-2014-118328

PATIENT
  Age: 54 Year
  Sex: Female
  Weight: 117 kg

DRUGS (5)
  1. MIRENA [Suspect]
     Active Substance: LEVONORGESTREL
     Indication: CONTRACEPTION
     Dosage: 20 MCG/24HR, CONT
     Route: 015
     Dates: start: 20080922, end: 20130930
  2. NASONEX [Concomitant]
     Active Substance: MOMETASONE FUROATE
     Indication: MULTIPLE ALLERGIES
     Dosage: UNK
     Dates: start: 2003
  3. SINGULAIR [Concomitant]
     Active Substance: MONTELUKAST SODIUM
     Indication: MULTIPLE ALLERGIES
     Dosage: UNK
     Dates: start: 2003
  4. PROZAC [Concomitant]
     Active Substance: FLUOXETINE HYDROCHLORIDE
     Indication: ANXIETY
  5. PROZAC [Concomitant]
     Active Substance: FLUOXETINE HYDROCHLORIDE
     Indication: DEPRESSION
     Dosage: UNK
     Dates: start: 1996

REACTIONS (15)
  - Abdominal pain lower [None]
  - Anxiety [None]
  - Gait disturbance [None]
  - Depression [Not Recovered/Not Resolved]
  - Libido decreased [Not Recovered/Not Resolved]
  - Pelvic pain [None]
  - Emotional distress [None]
  - Injury [None]
  - Dyspareunia [None]
  - Device defective [None]
  - Embedded device [None]
  - Abdominal pain [None]
  - Back pain [None]
  - Device difficult to use [None]
  - Fear [Not Recovered/Not Resolved]

NARRATIVE: CASE EVENT DATE: 201309
